FAERS Safety Report 14309987 (Version 1)
Quarter: 2017Q4

REPORT INFORMATION
  Report Type: Spontaneous
  Country: US (occurrence: US)
  Receive Date: 20171220
  Receipt Date: 20171220
  Transmission Date: 20180321
  Serious: No
  Sender: FDA-Public Use
  Company Number: US-GILEAD-2017-0311795

PATIENT
  Age: 62 Year
  Sex: Male

DRUGS (10)
  1. EPCLUSA [Suspect]
     Active Substance: SOFOSBUVIR\VELPATASVIR
     Indication: PRODUCT USED FOR UNKNOWN INDICATION
     Route: 065
  2. VALTREX [Concomitant]
     Active Substance: VALACYCLOVIR HYDROCHLORIDE
  3. PREVACID [Concomitant]
     Active Substance: LANSOPRAZOLE
  4. TRILIPIX [Concomitant]
     Active Substance: FENOFIBRIC ACID
  5. ASPIRIN                            /00002701/ [Concomitant]
     Active Substance: ASPIRIN
  6. MOMETASONE [Concomitant]
     Active Substance: MOMETASONE
  7. RAMIPRIL. [Concomitant]
     Active Substance: RAMIPRIL
  8. NOVOLOG [Concomitant]
     Active Substance: INSULIN ASPART
  9. LEVEMIR [Concomitant]
     Active Substance: INSULIN DETEMIR
  10. JANUVIA [Concomitant]
     Active Substance: SITAGLIPTIN PHOSPHATE

REACTIONS (1)
  - Blood creatine phosphokinase increased [Unknown]
